FAERS Safety Report 7176115 (Version 4)
Quarter: 2014Q2

REPORT INFORMATION
  Report Type: Spontaneous
  Country: None (occurrence: US)
  Receive Date: 20091113
  Receipt Date: 20140423
  Transmission Date: 20141212
  Serious: Yes (Hospitalization, Other)
  Sender: FDA-Public Use
  Company Number: US-ALEXION-A200900936

PATIENT
  Sex: Male

DRUGS (11)
  1. SOLIRIS [Suspect]
     Indication: PAROXYSMAL NOCTURNAL HAEMOGLOBINURIA
     Dosage: 600 MG, QW
     Route: 042
     Dates: start: 20070521, end: 20070611
  2. SOLIRIS [Suspect]
     Dosage: 900 MG, Q2W
     Route: 042
     Dates: start: 20070618
  3. SOLIRIS [Suspect]
     Dosage: 900 MG, Q12D
     Route: 042
     Dates: end: 200908
  4. SOLIRIS [Suspect]
     Dosage: 1200 MG, Q2W
     Route: 042
     Dates: start: 200908
  5. KLOR-CON [Concomitant]
  6. ZANTAC                             /00550802/ [Concomitant]
  7. PRILOSEC                           /00661201/ [Concomitant]
  8. FOLIC ACID [Concomitant]
  9. NEUPOGEN [Concomitant]
     Indication: NEUTROPENIA
     Dosage: UNK
     Dates: start: 200910
  10. VANCOMYCIN [Concomitant]
     Indication: CELLULITIS
     Dosage: UNK
     Dates: start: 200910, end: 200911
  11. CEFTAZIDIME [Concomitant]
     Indication: CELLULITIS
     Dosage: UNK
     Dates: start: 200910, end: 200911

REACTIONS (8)
  - Neutropenia [Recovering/Resolving]
  - Cellulitis [Recovered/Resolved]
  - Lymphadenopathy mediastinal [Unknown]
  - Renal failure chronic [Unknown]
  - Peripheral vascular disorder [Unknown]
  - Blood bilirubin increased [Unknown]
  - Haemolysis [Unknown]
  - Anaemia [Recovering/Resolving]
